FAERS Safety Report 8248604-2 (Version None)
Quarter: 2012Q1

REPORT INFORMATION
  Report Type: 
  Country: None (occurrence: None)
  Receive Date: 20120330
  Receipt Date: 20120322
  Transmission Date: 20120608
  Serious: Yes (Hospitalization)
  Sender: FDA-Public Use
  Company Number: IT-ASTRAZENECA-2012SE19944

PATIENT
  Sex: Female

DRUGS (2)
  1. NITROGLYCERIN [Suspect]
     Route: 065
  2. ATENOLOL [Suspect]
     Route: 065

REACTIONS (1)
  - SYNCOPE [None]
